FAERS Safety Report 6162321-4 (Version None)
Quarter: 2009Q2

REPORT INFORMATION
  Report Type: 
  Country: None (occurrence: None)
  Receive Date: 20090421
  Receipt Date: 20090415
  Transmission Date: 20091009
  Serious: Yes (Other)
  Sender: FDA-Public Use
  Company Number: CA-PFIZER INC-2008042098

PATIENT

DRUGS (12)
  1. LIPITOR [Suspect]
     Indication: BLOOD CHOLESTEROL INCREASED
     Route: 048
     Dates: start: 20080306, end: 20080311
  2. LIPITOR [Suspect]
  3. PAXIL [Concomitant]
     Indication: DEPRESSION
     Route: 048
     Dates: start: 19850101
  4. PAXIL [Concomitant]
     Indication: BIPOLAR DISORDER
  5. AMITRIPTLINE HYDROCHLORIDE TAB [Concomitant]
     Indication: DEPRESSION
     Route: 048
     Dates: start: 20000101
  6. AMITRIPTLINE HYDROCHLORIDE TAB [Concomitant]
     Indication: BIPOLAR DISORDER
  7. LORAZEPAM [Concomitant]
     Indication: ANXIETY
     Route: 048
     Dates: start: 19800101
  8. LORAZEPAM [Concomitant]
     Indication: BIPOLAR DISORDER
  9. RABEPRAZOLE SODIUM [Concomitant]
  10. CHLORAL HYDRATE [Concomitant]
     Indication: INSOMNIA
  11. DOMPERIDONE [Concomitant]
     Indication: GASTROINTESTINAL DISORDER
  12. PARIET [Concomitant]
     Indication: GASTROINTESTINAL DISORDER

REACTIONS (14)
  - ABASIA [None]
  - ACTIVITIES OF DAILY LIVING IMPAIRED [None]
  - ANOREXIA [None]
  - BACK PAIN [None]
  - FALL [None]
  - FEELING OF DESPAIR [None]
  - IMPAIRED WORK ABILITY [None]
  - INSOMNIA [None]
  - MUSCLE DISORDER [None]
  - MUSCLE SPASMS [None]
  - MUSCULAR WEAKNESS [None]
  - MYALGIA [None]
  - PAIN IN EXTREMITY [None]
  - WEIGHT DECREASED [None]
